FAERS Safety Report 6773437-3 (Version None)
Quarter: 2010Q2

REPORT INFORMATION
  Report Type: 
  Country: None (occurrence: None)
  Receive Date: 20100611
  Receipt Date: 20100602
  Transmission Date: 20101027
  Serious: No
  Sender: FDA-Public Use
  Company Number: APP201000519

PATIENT
  Age: 73 Year
  Sex: Female

DRUGS (1)
  1. SENSORCAINE [Suspect]
     Indication: ANAESTHESIA
     Dosage: EPIDURAL
     Route: 008

REACTIONS (2)
  - ATRIAL FIBRILLATION [None]
  - ATRIAL FLUTTER [None]
